FAERS Safety Report 9899658 (Version 2)
Quarter: 2014Q1

REPORT INFORMATION
  Report Type: Spontaneous
  Country: US (occurrence: US)
  Receive Date: 20140214
  Receipt Date: 20140214
  Transmission Date: 20141002
  Serious: No
  Sender: FDA-Public Use
  Company Number: US-GILEAD-2011-0044294

PATIENT
  Age: 77 Year
  Sex: Female

DRUGS (1)
  1. LETAIRIS [Suspect]
     Indication: PRODUCT USED FOR UNKNOWN INDICATION
     Dosage: 5 MG, UNK
     Route: 048
     Dates: start: 20110912, end: 20110927

REACTIONS (11)
  - Bacterial infection [Unknown]
  - Decreased appetite [Unknown]
  - Unevaluable event [Unknown]
  - Chromaturia [Unknown]
  - Malaise [Unknown]
  - Nausea [Unknown]
  - Abdominal discomfort [Unknown]
  - Abdominal pain upper [Unknown]
  - Dyspnoea [Unknown]
  - Hot flush [Unknown]
  - Headache [Unknown]
